FAERS Safety Report 5239590-8 (Version None)
Quarter: 2007Q1

REPORT INFORMATION
  Report Type: 
  Country: None (occurrence: None)
  Receive Date: 20070216
  Receipt Date: 20070205
  Transmission Date: 20070707
  Serious: Yes (Other)
  Sender: FDA-Public Use
  Company Number: HQWYE324118DEC06

PATIENT
  Sex: Female

DRUGS (14)
  1. EFFEXOR XR [Suspect]
     Indication: ANXIETY
     Route: 048
     Dates: start: 20060726, end: 20060801
  2. EFFEXOR XR [Interacting]
     Indication: DEPRESSION
     Route: 048
     Dates: start: 20060802, end: 20061103
  3. EFFEXOR XR [Interacting]
     Route: 048
     Dates: start: 20061104, end: 20061125
  4. EFFEXOR XR [Interacting]
     Route: 048
     Dates: start: 20061126, end: 20061210
  5. KLONOPIN [Concomitant]
     Indication: MOTION SICKNESS
     Dosage: 0.125MG UNKNOWN FREQUENCY AND 1 MG AT NIGHT
     Route: 048
  6. KLONOPIN [Concomitant]
     Indication: MYOCLONUS
  7. BACLOFEN [Concomitant]
     Indication: MOTION SICKNESS
     Route: 048
  8. ULTRAM [Interacting]
     Indication: PAIN
     Dosage: 100 MG 3-4 TIMES A DAY
     Route: 048
  9. ESTROPIPATE [Concomitant]
     Route: 048
  10. CENTRUM SILVER [Concomitant]
     Dosage: UNKNOWN
     Route: 048
  11. CALTRATE [Concomitant]
     Dosage: UNKNOWN
     Route: 048
  12. PSYLLIUM HYDROPHILIC MUCILLOID/SENNA FRUIT [Concomitant]
     Indication: IRRITABLE BOWEL SYNDROME
     Dosage: UNKNOWN
     Route: 048
  13. TYLENOL (CAPLET) [Concomitant]
     Indication: PAIN
     Route: 048
  14. BENTYL [Concomitant]
     Indication: IRRITABLE BOWEL SYNDROME
     Route: 048

REACTIONS (13)
  - ANXIETY [None]
  - BLOOD PRESSURE INCREASED [None]
  - CONDITION AGGRAVATED [None]
  - CRYING [None]
  - DEPRESSION [None]
  - DRUG INTERACTION [None]
  - DRUG WITHDRAWAL SYNDROME [None]
  - FORMICATION [None]
  - MEMORY IMPAIRMENT [None]
  - PAIN [None]
  - PANIC ATTACK [None]
  - SUICIDAL IDEATION [None]
  - TREMOR [None]
